FAERS Safety Report 17342295 (Version 1)
Quarter: 2020Q1

REPORT INFORMATION
  Report Type: Spontaneous
  Country: US (occurrence: US)
  Receive Date: 20200129
  Receipt Date: 20200129
  Transmission Date: 20200409
  Serious: Yes (Other)
  Sender: FDA-Public Use
  Company Number: US-STRONGBRIDGE BIOPHARMA-2020-STR-000025

PATIENT
  Age: 42 Year
  Sex: Male

DRUGS (1)
  1. KEVEYIS [Suspect]
     Active Substance: DICHLORPHENAMIDE
     Indication: FAMILIAL PERIODIC PARALYSIS
     Dosage: 25 MG, BID
     Route: 048
     Dates: start: 20180907

REACTIONS (5)
  - Confusional state [Recovering/Resolving]
  - Asthenia [Recovering/Resolving]
  - Product dose omission [Recovering/Resolving]
  - Intentional product misuse [Recovering/Resolving]
  - Meningitis [Recovering/Resolving]

NARRATIVE: CASE EVENT DATE: 20200121
